FAERS Safety Report 18780338 (Version 1)
Quarter: 2021Q1

REPORT INFORMATION
  Report Type: Spontaneous
  Country: US (occurrence: US)
  Receive Date: 20210125
  Receipt Date: 20210125
  Transmission Date: 20210419
  Serious: Yes (Hospitalization, Other)
  Sender: FDA-Public Use
  Company Number: US-MICRO LABS LIMITED-ML2021-00133

PATIENT
  Age: 70 Year
  Sex: Male

DRUGS (8)
  1. AMLODIPINE [Concomitant]
     Active Substance: AMLODIPINE BESYLATE
  2. ROSUVASTATIN. [Concomitant]
     Active Substance: ROSUVASTATIN
  3. APIXABAN [Suspect]
     Active Substance: APIXABAN
     Indication: ATRIAL FIBRILLATION
  4. MAGNESIUM [Concomitant]
     Active Substance: MAGNESIUM
  5. CHOLECALIFEROL [Concomitant]
  6. DOFETILIDE. [Concomitant]
     Active Substance: DOFETILIDE
  7. EPLERENONE. [Concomitant]
     Active Substance: EPLERENONE
  8. METOPROLOL. [Concomitant]
     Active Substance: METOPROLOL

REACTIONS (2)
  - IgA nephropathy [Recovering/Resolving]
  - Tubulointerstitial nephritis [Recovering/Resolving]
